FAERS Safety Report 15397653 (Version 1)
Quarter: 2018Q3

REPORT INFORMATION
  Report Type: Report from Study
  Country: US (occurrence: US)
  Receive Date: 20180918
  Receipt Date: 20180918
  Transmission Date: 20181010
  Serious: Yes (Other)
  Sender: FDA-Public Use
  Company Number: US-PFIZER INC-2018294338

PATIENT
  Age: 69 Year
  Sex: Female

DRUGS (2)
  1. IBRANCE [Suspect]
     Active Substance: PALBOCICLIB
     Indication: BREAST CANCER FEMALE
     Dosage: 125 MG, DAILY
     Route: 048
     Dates: start: 20180710, end: 201807
  2. IBRANCE [Suspect]
     Active Substance: PALBOCICLIB
     Dosage: 100 MG, DAILY
     Route: 048
     Dates: start: 20180831

REACTIONS (10)
  - Sinusitis [Unknown]
  - Bone marrow failure [Unknown]
  - Diarrhoea [Recovered/Resolved]
  - Stomatitis [Unknown]
  - Fatigue [Unknown]
  - Oropharyngeal pain [Unknown]
  - White blood cell count increased [Unknown]
  - Red blood cell count decreased [Unknown]
  - Contusion [Recovered/Resolved]
  - Constipation [Unknown]

NARRATIVE: CASE EVENT DATE: 2018
